FAERS Safety Report 5915427-6 (Version None)
Quarter: 2008Q4

REPORT INFORMATION
  Report Type: 
  Country: None (occurrence: None)
  Receive Date: 20081010
  Receipt Date: 20081002
  Transmission Date: 20090506
  Serious: Yes (Other)
  Sender: FDA-Public Use
  Company Number: US-PFIZER INC-2008074018

PATIENT
  Sex: Male

DRUGS (6)
  1. LIPITOR [Suspect]
  2. NORVASC [Suspect]
  3. ENALAPRIL MALEATE [Suspect]
  4. ZOCOR [Suspect]
  5. GENERAL NUTRIENTS [Suspect]
  6. YEAST [Suspect]

REACTIONS (4)
  - ASTHENIA [None]
  - NEUROPATHY PERIPHERAL [None]
  - PAIN IN EXTREMITY [None]
  - TYPE 1 DIABETES MELLITUS [None]
